FAERS Safety Report 9617817 (Version 1)
Quarter: 2013Q4

REPORT INFORMATION
  Report Type: Spontaneous
  Country: GB (occurrence: None)
  Receive Date: 20131009
  Receipt Date: 20131009
  Transmission Date: 20140711
  Serious: Yes (Other)
  Sender: FDA-Public Use
  Company Number: AUR-APL-2013-08142

PATIENT
  Age: 72 Year
  Sex: Male

DRUGS (7)
  1. SIMVASTATIN [Suspect]
     Indication: PRODUCT USED FOR UNKNOWN INDICATION
  2. LISINOPRIL [Suspect]
     Indication: HYPERTENSION
  3. AMLODIPINE [Suspect]
     Indication: HYPERTENSION
  4. ATENOLOL(ATENOLOL) [Concomitant]
  5. ATORVASTATIN(ATORVASTATIN) [Concomitant]
  6. DOXAZOSIN(DOZAZOSIN) [Concomitant]
  7. RANITIDINE(RANITIDINE) [Concomitant]

REACTIONS (6)
  - Blood glucose increased [None]
  - Drug interaction [None]
  - White blood cell count increased [None]
  - Myalgia [None]
  - Arthralgia [None]
  - Malaise [None]
